FAERS Safety Report 8076833-X (Version None)
Quarter: 2012Q1

REPORT INFORMATION
  Report Type: 
  Country: None (occurrence: None)
  Receive Date: 20120127
  Receipt Date: 20120120
  Transmission Date: 20120608
  Serious: Yes (Death)
  Sender: FDA-Public Use
  Company Number: FR-MERCK-1201USA03373

PATIENT
  Age: 65 Year
  Sex: Male

DRUGS (7)
  1. TARGRETIN [Suspect]
     Indication: MYCOSIS FUNGOIDES
     Route: 065
     Dates: start: 20091101, end: 20111205
  2. INTERFERON ALFA [Suspect]
     Indication: MYCOSIS FUNGOIDES
     Dosage: MIU
     Route: 065
     Dates: start: 20101101
  3. EMEND [Suspect]
     Indication: VOMITING
     Route: 065
     Dates: start: 20110901
  4. LEVOTHYROXINE SODIUM [Concomitant]
     Route: 065
  5. AMITRIPTYLINE HCL [Concomitant]
     Route: 065
  6. LEXOMIL [Concomitant]
     Dosage: 3 INTAKES
     Route: 065
  7. XERIAL 50 [Concomitant]
     Route: 065

REACTIONS (1)
  - DEHYDRATION [None]
